FAERS Safety Report 5635493-5 (Version None)
Quarter: 2008Q1

REPORT INFORMATION
  Report Type: 
  Country: None (occurrence: None)
  Receive Date: 20080222
  Receipt Date: 20080212
  Transmission Date: 20080703
  Serious: Yes (Other)
  Sender: FDA-Public Use
  Company Number: US-PFIZER INC-2008014186

PATIENT
  Sex: Female

DRUGS (1)
  1. DILANTIN [Suspect]

REACTIONS (4)
  - CONVULSION [None]
  - MIGRAINE [None]
  - OCULAR HYPERAEMIA [None]
  - TREMOR [None]
